FAERS Safety Report 16047328 (Version 1)
Quarter: 2019Q1

REPORT INFORMATION
  Report Type: Spontaneous
  Country: US (occurrence: US)
  Receive Date: 20190207
  Receipt Date: 20190207
  Transmission Date: 20190418
  Serious: Yes (Other)
  Sender: FDA-Public Use
  Company Number: None

PATIENT
  Age: 61 Year
  Sex: Female

DRUGS (1)
  1. EPOGEN [Suspect]
     Active Substance: ERYTHROPOIETIN
     Indication: ANAEMIA
     Dosage: ?          OTHER DOSE:10,000 UNITS;?
     Route: 058
     Dates: start: 20170804

REACTIONS (2)
  - Haemoglobin decreased [None]
  - Transfusion [None]

NARRATIVE: CASE EVENT DATE: 201901
